FAERS Safety Report 21662353 (Version 1)
Quarter: 2022Q4

REPORT INFORMATION
  Report Type: Report from Study
  Country: US (occurrence: US)
  Receive Date: 20221130
  Receipt Date: 20221130
  Transmission Date: 20230113
  Serious: Yes (Death, Other)
  Sender: FDA-Public Use
  Company Number: US-TAKEDA-US201614557

PATIENT
  Age: 90 Year
  Sex: Female

DRUGS (2)
  1. MESALAMINE [Suspect]
     Active Substance: MESALAMINE
     Indication: Product used for unknown indication
     Dosage: 4 DOSAGE FORM, QD
     Route: 048
  2. MESALAMINE [Suspect]
     Active Substance: MESALAMINE
     Dosage: 1.2 GRAM, BID
     Route: 065

REACTIONS (3)
  - Death [Fatal]
  - Colitis [Recovered/Resolved]
  - Incorrect dosage administered [Unknown]

NARRATIVE: CASE EVENT DATE: 20221021
